FAERS Safety Report 4298962-9 (Version None)
Quarter: 2004Q1

REPORT INFORMATION
  Report Type: 
  Country: None (occurrence: None)
  Receive Date: 20040219
  Receipt Date: 20020410
  Transmission Date: 20041129
  Serious: Yes (Death, Hospitalization, Disabling)
  Sender: FDA-Public Use
  Company Number: PHBS2002BE13868

PATIENT
  Age: 71 Year
  Sex: Male

DRUGS (6)
  1. LOPRESSOR [Concomitant]
  2. DEXAMETHASONE [Concomitant]
  3. AREDIA [Suspect]
     Indication: METASTASES TO BONE
     Dosage: 60 MG, UNK
     Route: 065
     Dates: start: 20020214
  4. ESTRACYT [Concomitant]
  5. DAFALGAN [Concomitant]
  6. ZANTAC [Concomitant]

REACTIONS (9)
  - CONJUNCTIVITIS [None]
  - EPISCLERITIS [None]
  - IRIDOCYCLITIS [None]
  - MALIGNANT NEOPLASM PROGRESSION [None]
  - PANOPHTHALMITIS [None]
  - PROSTATE CANCER [None]
  - PROSTATE CANCER METASTATIC [None]
  - SCLERITIS [None]
  - VITRECTOMY [None]
